FAERS Safety Report 21375323 (Version 1)
Quarter: 2022Q3

REPORT INFORMATION
  Report Type: Spontaneous
  Country: KR (occurrence: KR)
  Receive Date: 20220926
  Receipt Date: 20220926
  Transmission Date: 20221027
  Serious: Yes (Hospitalization, Other)
  Sender: FDA-Public Use
  Company Number: KR-ORGANON-O2209KOR001606

PATIENT
  Age: 82 Year
  Sex: Female
  Weight: 58 kg

DRUGS (13)
  1. REMERON [Suspect]
     Active Substance: MIRTAZAPINE
     Indication: Depression
     Dosage: 30 MILLIGRAM
     Route: 048
     Dates: start: 20180813
  2. MONTELUKAST SODIUM [Concomitant]
     Active Substance: MONTELUKAST SODIUM
     Indication: Asthma
     Dosage: 10 MILLIGRAM
     Route: 048
     Dates: start: 20160718
  3. GLIMEPIRIDE [Concomitant]
     Active Substance: GLIMEPIRIDE
     Indication: Type 2 diabetes mellitus
     Dosage: 4 MILLIGRAM (TRADITIONAL TABLET)
     Route: 048
     Dates: start: 20190201
  4. HYDROCORTISONE [Concomitant]
     Active Substance: HYDROCORTISONE
     Indication: Adrenal disorder
     Dosage: 10 MILLIGRAM (FORMULATION REPORTED AS TRADITIONAL TABLET)
     Route: 048
     Dates: start: 20190415
  5. TELMISARTAN AND AMLODIPINE [Concomitant]
     Active Substance: AMLODIPINE BESYLATE\TELMISARTAN
     Indication: Secondary hypertension
     Dosage: UNK (FORMULATION: MULTILAYERED TABLET)
     Route: 048
     Dates: start: 20171213
  6. HYDROCHLOROTHIAZIDE [Concomitant]
     Active Substance: HYDROCHLOROTHIAZIDE
     Indication: Secondary hypertension
     Dosage: 25 MILLIGRAM (FORMULATION REPORTED AS TRADITIONAL TABLET)
     Route: 048
     Dates: start: 20180108, end: 20191118
  7. MAGNESIUM HYDROXIDE [Concomitant]
     Active Substance: MAGNESIUM HYDROXIDE
     Indication: Prophylaxis
     Dosage: 500 MILLIGRAM (FORMULATION REPORTED AS TRADITIONAL TABLET)
     Route: 048
     Dates: start: 20190508, end: 20191119
  8. MIRABEGRON [Concomitant]
     Active Substance: MIRABEGRON
     Indication: Nocturia
     Dosage: 50 MILLIGRAM
     Route: 048
     Dates: start: 20180813
  9. PROPIVERINE HYDROCHLORIDE [Concomitant]
     Active Substance: PROPIVERINE HYDROCHLORIDE
     Indication: Nocturia
     Dosage: 10 MILLIGRAM
     Route: 048
     Dates: start: 20180813
  10. SILODOSIN [Concomitant]
     Active Substance: SILODOSIN
     Indication: Nocturia
     Dosage: 4 MILLIGRAM
     Route: 048
     Dates: start: 20180910
  11. DONEPEZIL HYDROCHLORIDE [Concomitant]
     Active Substance: DONEPEZIL HYDROCHLORIDE
     Indication: Dementia Alzheimer^s type
     Dosage: 10 MILLIGRAM
     Route: 048
     Dates: start: 20160622
  12. ALPRAZOLAM [Concomitant]
     Active Substance: ALPRAZOLAM
     Indication: Dementia Alzheimer^s type
     Dosage: UNK (FORMULATION REPORTED AS TRADITIONAL TABLET)
     Route: 048
     Dates: start: 20180312
  13. ZOLPIDEM TARTRATE [Concomitant]
     Active Substance: ZOLPIDEM TARTRATE
     Indication: Sleep disorder
     Dosage: 5 MILLIGRAM
     Dates: start: 20181231

REACTIONS (1)
  - Tuberculosis [Recovered/Resolved]

NARRATIVE: CASE EVENT DATE: 20191029
